FAERS Safety Report 14318910 (Version 3)
Quarter: 2018Q1

REPORT INFORMATION
  Report Type: Report from Study
  Country: CN (occurrence: CN)
  Receive Date: 20171222
  Receipt Date: 20180221
  Transmission Date: 20180509
  Serious: Yes (Other)
  Sender: FDA-Public Use
  Company Number: CN-BAYER-2017-211898

PATIENT
  Age: 55 Year
  Sex: Male

DRUGS (1)
  1. STIVARGA [Suspect]
     Active Substance: REGORAFENIB
     Indication: GASTROINTESTINAL CARCINOMA
     Dosage: 120 MG, QD
     Route: 048
     Dates: start: 20171031

REACTIONS (18)
  - Gastrointestinal carcinoma [Not Recovered/Not Resolved]
  - Lung neoplasm [None]
  - Faeces soft [None]
  - Back pain [Recovering/Resolving]
  - Dyspnoea [Not Recovered/Not Resolved]
  - Drug ineffective [None]
  - Skin disorder [None]
  - Skin disorder [Recovering/Resolving]
  - Gastrointestinal carcinoma [Not Recovered/Not Resolved]
  - Diarrhoea [None]
  - Pain in extremity [Recovering/Resolving]
  - Metastases to lung [None]
  - Anal ulcer [Not Recovered/Not Resolved]
  - Pulmonary pain [Not Recovered/Not Resolved]
  - Chest pain [Not Recovered/Not Resolved]
  - Rectal haemorrhage [Recovering/Resolving]
  - Glossodynia [Not Recovered/Not Resolved]
  - Coccydynia [Recovering/Resolving]

NARRATIVE: CASE EVENT DATE: 20171101
